FAERS Safety Report 4818968-8 (Version None)
Quarter: 2005Q4

REPORT INFORMATION
  Report Type: 
  Country: None (occurrence: None)
  Receive Date: 20051101
  Receipt Date: 20051021
  Transmission Date: 20060501
  Serious: Yes (Hospitalization)
  Sender: FDA-Public Use
  Company Number: ST-2005-008669

PATIENT
  Age: 69 Year
  Sex: Male

DRUGS (10)
  1. OLMETEC [Suspect]
     Indication: HYPERTENSION
     Dosage: 20 MG QOD; PO
     Route: 048
     Dates: start: 20050819
  2. YODEL [Concomitant]
  3. GASTER [Concomitant]
  4. WYTENS [Concomitant]
  5. ACECOL [Concomitant]
  6. HYPEN [Concomitant]
  7. MUCOSTA [Concomitant]
  8. CARDENALIN [Concomitant]
  9. BASEN [Concomitant]
  10. EPOGIN [Concomitant]

REACTIONS (2)
  - HYPOGLYCAEMIA [None]
  - LOSS OF CONSCIOUSNESS [None]
